FAERS Safety Report 19960283 (Version 1)
Quarter: 2021Q4

REPORT INFORMATION
  Report Type: Spontaneous
  Country: SE (occurrence: SE)
  Receive Date: 20211015
  Receipt Date: 20211015
  Transmission Date: 20220304
  Serious: Yes (Hospitalization, Other)
  Sender: FDA-Public Use
  Company Number: SE-GEDEON RICHTER PLC.-2021_GR_007906

PATIENT
  Sex: Male

DRUGS (2)
  1. CARIPRAZINE HYDROCHLORIDE [Suspect]
     Active Substance: CARIPRAZINE HYDROCHLORIDE
     Indication: Schizophrenia
     Dosage: UNK
  2. HALDOL [Concomitant]
     Active Substance: HALOPERIDOL

REACTIONS (2)
  - Schizophrenia [Recovering/Resolving]
  - Drug ineffective [Unknown]
